FAERS Safety Report 7084248-6 (Version None)
Quarter: 2010Q4

REPORT INFORMATION
  Report Type: 
  Country: None (occurrence: None)
  Receive Date: 20101104
  Receipt Date: 20101101
  Transmission Date: 20110411
  Serious: Yes (Other)
  Sender: FDA-Public Use
  Company Number: US-PFIZER INC-2010138859

PATIENT
  Sex: Female
  Weight: 100 kg

DRUGS (5)
  1. CELEBREX [Suspect]
     Dosage: 200 MG, 1X/DAY
     Route: 048
     Dates: start: 20070401
  2. CALAN [Concomitant]
     Indication: MIGRAINE
     Dosage: 120 MG, 3X/DAY
     Route: 048
  3. NAPROXEN SODIUM / SUMATRIPTAN SUCCINATE [Concomitant]
     Indication: MIGRAINE
     Dosage: 500 MG, AS NEEDED
     Route: 048
  4. DHA [Concomitant]
     Indication: MIGRAINE
     Dosage: UNK
  5. DEPAKOTE [Concomitant]
     Indication: MIGRAINE
     Dosage: 1500 MG, 1X/DAY
     Route: 048

REACTIONS (2)
  - FIBROMYALGIA [None]
  - GASTRIC ULCER [None]
